FAERS Safety Report 21491111 (Version 2)
Quarter: 2022Q4

REPORT INFORMATION
  Report Type: Spontaneous
  Country: US (occurrence: US)
  Receive Date: 20221021
  Receipt Date: 20221026
  Transmission Date: 20230113
  Serious: Yes (Other)
  Sender: FDA-Public Use
  Company Number: US-REGENERON PHARMACEUTICALS, INC.-2022-134958

PATIENT
  Sex: Female

DRUGS (3)
  1. PRALUENT [Suspect]
     Active Substance: ALIROCUMAB
     Indication: Hypercholesterolaemia
     Dosage: 150 MG, Q2W
     Route: 058
     Dates: start: 20220519
  2. LISINOPRIL [Concomitant]
     Active Substance: LISINOPRIL
     Indication: Product used for unknown indication
     Dosage: UNK
     Route: 065
  3. VALTREX [Concomitant]
     Active Substance: VALACYCLOVIR HYDROCHLORIDE
     Indication: Product used for unknown indication
     Dosage: UNK
     Route: 065

REACTIONS (27)
  - Cataract [Unknown]
  - Herpes ophthalmic [Unknown]
  - Herpes ophthalmic [Unknown]
  - Herpes ophthalmic [Unknown]
  - Sinus disorder [Unknown]
  - Illness [Unknown]
  - Dyspnoea [Recovering/Resolving]
  - Nasal disorder [Unknown]
  - Palpitations [Unknown]
  - Alopecia [Unknown]
  - Insomnia [Recovering/Resolving]
  - Nasal congestion [Unknown]
  - Chronic sinusitis [Unknown]
  - Pyrexia [Unknown]
  - Headache [Unknown]
  - Feeling abnormal [Unknown]
  - Pain in extremity [Unknown]
  - High density lipoprotein increased [Unknown]
  - Low density lipoprotein increased [Unknown]
  - Arthritis [Unknown]
  - Cystitis [Unknown]
  - Proteinuria [Unknown]
  - Labile blood pressure [Unknown]
  - Hypotension [Unknown]
  - Fall [Unknown]
  - Cough [Unknown]
  - Drug ineffective [Unknown]

NARRATIVE: CASE EVENT DATE: 20220101
